FAERS Safety Report 5704165-0 (Version None)
Quarter: 2008Q2

REPORT INFORMATION
  Report Type: 
  Country: None (occurrence: None)
  Receive Date: 20080409
  Receipt Date: 20080328
  Transmission Date: 20081010
  Serious: Yes (Hospitalization)
  Sender: FDA-Public Use
  Company Number: 2008AL001944

PATIENT
  Sex: Male

DRUGS (2)
  1. OXAZEPAM [Suspect]
     Indication: SCHIZOPHRENIA
  2. SEROQUEL [Concomitant]

REACTIONS (7)
  - ANTISOCIAL BEHAVIOUR [None]
  - DISTURBANCE IN ATTENTION [None]
  - DIZZINESS [None]
  - DRY MOUTH [None]
  - MEMORY IMPAIRMENT [None]
  - PALPITATIONS [None]
  - WEIGHT INCREASED [None]
